FAERS Safety Report 7045887-1 (Version None)
Quarter: 2010Q4

REPORT INFORMATION
  Report Type: 
  Country: None (occurrence: None)
  Receive Date: 20101014
  Receipt Date: 20101001
  Transmission Date: 20110411
  Serious: Yes (Hospitalization)
  Sender: FDA-Public Use
  Company Number: PHHY2010JP43131

PATIENT
  Sex: Male
  Weight: 68 kg

DRUGS (10)
  1. ZOMETA [Suspect]
     Indication: METASTASES TO BONE
     Dosage: 4 MG EVERY 4 WEEKS
     Route: 041
     Dates: start: 20080311, end: 20090312
  2. SELBEX [Concomitant]
     Indication: GASTRITIS
     Dosage: 150 MG, UNK
     Route: 048
  3. TAMSULOSIN HCL [Concomitant]
     Indication: DYSURIA
     Dosage: 0.2 MG, UNK
     Route: 048
     Dates: start: 20011122
  4. SHAKUYAKUKANZOUTOU [Concomitant]
     Indication: HOT FLUSH
     Dosage: 7.5 G, UNK
     Route: 048
     Dates: start: 20030925
  5. ESTRACYT                                /SCH/ [Concomitant]
     Indication: PROSTATE CANCER
     Dosage: 626.8 MG, UNK
     Route: 048
     Dates: start: 20050707
  6. PROSTAL [Concomitant]
     Indication: PROSTATE CANCER
     Dosage: 100 MG, UNK
     Route: 048
     Dates: start: 20060928, end: 20090429
  7. GASTER D [Concomitant]
     Indication: GASTRIC ULCER
     Dosage: 20 MG, UNK
     Route: 048
     Dates: start: 20080212
  8. ASPIRIN [Concomitant]
     Indication: ANTICOAGULANT THERAPY
     Dosage: 100 MG, UNK
     Route: 048
     Dates: start: 20080212
  9. ALFAROL [Concomitant]
     Indication: HYPOCALCAEMIA
     Dosage: 0.5 UG, UNK
     Route: 048
     Dates: start: 20090409, end: 20090429
  10. DECADRON [Concomitant]
     Indication: PROSTATE CANCER
     Dosage: 0.5 MG, UNK
     Route: 048
     Dates: start: 20090409, end: 20090429

REACTIONS (10)
  - C-REACTIVE PROTEIN INCREASED [None]
  - CALCIFIC DEPOSITS REMOVAL [None]
  - CELLULITIS [None]
  - DENTAL CARE [None]
  - FACIAL PAIN [None]
  - HYPOCALCAEMIA [None]
  - INCISIONAL DRAINAGE [None]
  - OSTEOMYELITIS [None]
  - SWELLING FACE [None]
  - TRISMUS [None]
